FAERS Safety Report 5252842-0 (Version None)
Quarter: 2007Q1

REPORT INFORMATION
  Report Type: 
  Country: None (occurrence: None)
  Receive Date: 20070227
  Receipt Date: 20070212
  Transmission Date: 20070707
  Serious: Yes (Death)
  Sender: FDA-Public Use
  Company Number: 236469

PATIENT
  Age: 68 Year
  Sex: Female

DRUGS (1)
  1. RANIBIZUMAB) PWDR + SOLVENT, INJECTION SOLN [Suspect]
     Indication: MACULAR DEGENERATION
     Dosage: 0.3 MG, 1/MONTH, INTRAVITREAL
     Dates: start: 20061031

REACTIONS (1)
  - DYSPNOEA [None]
